FAERS Safety Report 13932723 (Version 1)
Quarter: 2017Q3

REPORT INFORMATION
  Report Type: Spontaneous
  Country: DE (occurrence: DE)
  Receive Date: 20170904
  Receipt Date: 20170904
  Transmission Date: 20171127
  Serious: Yes (Other)
  Sender: FDA-Public Use
  Company Number: DE-AUROBINDO-AUR-APL-2010-01645

PATIENT
  Age: 76 Year
  Sex: Female

DRUGS (4)
  1. L-THYROXIN [Suspect]
     Active Substance: LEVOTHYROXINE SODIUM
     Indication: PRODUCT USED FOR UNKNOWN INDICATION
     Dosage: UNK UNK,UNK,,UNKNOWN
     Route: 065
  2. SIMVASTATIN. [Suspect]
     Active Substance: SIMVASTATIN
     Indication: PRODUCT USED FOR UNKNOWN INDICATION
     Dosage: UNK
     Route: 065
  3. HYDROCHLOROTHIAZIDE. [Suspect]
     Active Substance: HYDROCHLOROTHIAZIDE
     Indication: PRODUCT USED FOR UNKNOWN INDICATION
     Dosage: UNK UNK,UNK,,UNKNOWN
     Route: 065
  4. PANTOPRAZOLE GASTR-RESISTANT TABLETS 20MG [Suspect]
     Active Substance: PANTOPRAZOLE
     Indication: PRODUCT USED FOR UNKNOWN INDICATION
     Dosage: UNK UNK,UNK,,UNKNOWN
     Route: 065

REACTIONS (2)
  - Jaw disorder [Recovering/Resolving]
  - Wound treatment [Recovering/Resolving]

NARRATIVE: CASE EVENT DATE: 20100527
